FAERS Safety Report 21959895 (Version 1)
Quarter: 2023Q1

REPORT INFORMATION
  Report Type: Other
  Country: KR (occurrence: None)
  Receive Date: 20230206
  Receipt Date: 20230206
  Transmission Date: 20230418
  Serious: Yes (Hospitalization, Other)
  Sender: FDA-Public Use
  Company Number: KR-Square-000126

PATIENT
  Age: 32 Year
  Sex: Male

DRUGS (2)
  1. ACYCLOVIR [Suspect]
     Active Substance: ACYCLOVIR
     Indication: Varicella zoster virus infection
     Dosage: 10 MG/KG EVERY 8 H
     Route: 042
  2. ACYCLOVIR [Suspect]
     Active Substance: ACYCLOVIR
     Indication: Meningitis
     Dosage: 10 MG/KG EVERY 8 H
     Route: 042

REACTIONS (1)
  - Herpes zoster oticus [Not Recovered/Not Resolved]
